FAERS Safety Report 6215917-5 (Version None)
Quarter: 2009Q2

REPORT INFORMATION
  Report Type: 
  Country: None (occurrence: None)
  Receive Date: 20090605
  Receipt Date: 20090528
  Transmission Date: 20091009
  Serious: Yes (Other)
  Sender: FDA-Public Use
  Company Number: DE-ROCHE-636155

PATIENT
  Sex: Male

DRUGS (1)
  1. PEG-INTERFERON ALFA NOS [Suspect]
     Indication: HEPATITIS C
     Dosage: LONG-TIME THERAPY
     Route: 065

REACTIONS (1)
  - NERVE ROOT LESION [None]
